FAERS Safety Report 4523629-9 (Version None)
Quarter: 2004Q4

REPORT INFORMATION
  Report Type: 
  Country: None (occurrence: None)
  Receive Date: 20041210
  Receipt Date: 20040628
  Transmission Date: 20050328
  Serious: Yes (Hospitalization)
  Sender: FDA-Public Use
  Company Number: 200412219JP

PATIENT
  Age: 62 Year
  Sex: Female
  Weight: 58 kg

DRUGS (15)
  1. ARAVA [Suspect]
     Indication: RHEUMATOID ARTHRITIS
     Route: 048
     Dates: start: 20040401, end: 20040625
  2. PREDONINE [Suspect]
     Indication: RHEUMATOID ARTHRITIS
     Route: 048
     Dates: start: 20040629, end: 20040628
  3. LORCAM [Suspect]
     Indication: ARTHRALGIA
     Route: 048
     Dates: start: 20040630
  4. GLAKAY [Concomitant]
     Indication: OSTEOPOROSIS
     Route: 048
  5. CLINORIL [Concomitant]
     Indication: ARTHRALGIA
     Route: 048
     Dates: end: 20040628
  6. CYANOCOBALAMIN [Concomitant]
     Indication: NEUROPATHY PERIPHERAL
     Route: 048
  7. NEUER [Concomitant]
     Indication: PROPHYLAXIS
     Dates: end: 20040628
  8. ATARAX [Concomitant]
     Indication: PRURITUS
     Route: 048
     Dates: end: 20040628
  9. ORCL [Concomitant]
     Indication: RHEUMATOID ARTHRITIS
     Route: 048
     Dates: start: 20010729, end: 20040401
  10. RHEUMATREX [Concomitant]
     Indication: RHEUMATOID ARTHRITIS
     Route: 048
     Dates: start: 20000404, end: 20040401
  11. SELBEX [Concomitant]
     Indication: PROPHYLAXIS
     Route: 048
     Dates: start: 20040630
  12. BREDININ [Concomitant]
     Indication: RHEUMATOID ARTHRITIS
     Route: 048
     Dates: start: 20040630
  13. QUESTRAN [Concomitant]
     Indication: DRUG THERAPY
     Route: 048
  14. PARIET [Concomitant]
     Indication: GASTRIC ULCER
     Route: 048
     Dates: start: 20040707
  15. STRONG NEO-MINOPHAGEN C [Concomitant]
     Indication: HEPATIC FUNCTION ABNORMAL
     Route: 042
     Dates: start: 20040628, end: 20040629

REACTIONS (3)
  - HEPATITIS [None]
  - HYPOKALAEMIA [None]
  - PROTEIN TOTAL DECREASED [None]
